FAERS Safety Report 24155868 (Version 1)
Quarter: 2024Q3

REPORT INFORMATION
  Report Type: Spontaneous
  Country: US (occurrence: US)
  Receive Date: 20240731
  Receipt Date: 20240731
  Transmission Date: 20241016
  Serious: Yes (Hospitalization, Other)
  Sender: RANBAXY
  Company Number: US-SUN PHARMACEUTICAL INDUSTRIES LTD-2024R1-459485

PATIENT
  Age: 36 Month
  Sex: Male

DRUGS (4)
  1. AZITHROMYCIN [Suspect]
     Active Substance: AZITHROMYCIN
     Indication: Protein C deficiency
     Dosage: UNK (THRICE WEEKLY)
     Route: 065
  2. HYDROXYCHLOROQUINE [Suspect]
     Active Substance: HYDROXYCHLOROQUINE
     Indication: Protein C deficiency
     Dosage: UNK
     Route: 065
  3. METHYLPREDNISOLONE [Suspect]
     Active Substance: METHYLPREDNISOLONE
     Indication: Protein C deficiency
     Dosage: 10 MILLIGRAM/KILOGRAM, WEEKLY
     Route: 042
  4. PREDNISOLONE [Suspect]
     Active Substance: PREDNISOLONE
     Indication: Protein C deficiency
     Dosage: 6 MILLIGRAM, DAILY
     Route: 048

REACTIONS (3)
  - Status epilepticus [Unknown]
  - Tracheo-oesophageal fistula [Unknown]
  - Pneumatosis intestinalis [Unknown]
